FAERS Safety Report 12494279 (Version 2)
Quarter: 2016Q3

REPORT INFORMATION
  Report Type: Report from Study
  Country: NO (occurrence: NO)
  Receive Date: 20160623
  Receipt Date: 20160705
  Transmission Date: 20161109
  Serious: Yes (Hospitalization)
  Sender: FDA-Public Use
  Company Number: PHHO2016NO005740

PATIENT
  Age: 59 Year
  Sex: Female
  Weight: 69.98 kg

DRUGS (4)
  1. AFINITOR [Suspect]
     Active Substance: EVEROLIMUS
     Indication: BREAST CANCER METASTATIC
     Dosage: 10 OT
     Route: 048
     Dates: start: 20160322, end: 20160412
  2. AROMASIN [Suspect]
     Active Substance: EXEMESTANE
     Indication: PRODUCT USED FOR UNKNOWN INDICATION
     Dosage: 25 MG, QD
     Route: 048
  3. EXEMESTANE. [Suspect]
     Active Substance: EXEMESTANE
     Indication: BREAST CANCER METASTATIC
     Dosage: UNK
     Route: 065
     Dates: start: 20160322, end: 20160412
  4. CALCIGRAN FORTE [Concomitant]
     Indication: PRODUCT USED FOR UNKNOWN INDICATION
     Dosage: 1000 MG/800 IE (SEVERAL YEARS)
     Route: 065

REACTIONS (11)
  - Haemoglobin increased [Unknown]
  - Stomatitis [Not Recovered/Not Resolved]
  - Vomiting [Recovered/Resolved]
  - Aspartate aminotransferase increased [Unknown]
  - Nausea [Recovered/Resolved]
  - Hypokalaemia [Recovering/Resolving]
  - Lymphocyte count decreased [Unknown]
  - Abdominal pain [Recovered/Resolved]
  - Gastritis [Unknown]
  - Diarrhoea [Recovered/Resolved]
  - Alanine aminotransferase increased [Unknown]

NARRATIVE: CASE EVENT DATE: 20160325
